FAERS Safety Report 8391062-8 (Version None)
Quarter: 2012Q2

REPORT INFORMATION
  Report Type: 
  Country: None (occurrence: None)
  Receive Date: 20120529
  Receipt Date: 20120518
  Transmission Date: 20120825
  Serious: Yes (Other)
  Sender: FDA-Public Use
  Company Number: US-JNJFOC-20120502212

PATIENT
  Sex: Male
  Weight: 96.16 kg

DRUGS (9)
  1. DICYCLOMINE [Concomitant]
     Route: 065
  2. IRON [Concomitant]
     Route: 065
  3. SIMVASTATIN [Concomitant]
     Route: 065
  4. ASPIRIN [Concomitant]
     Route: 065
  5. REMICADE [Suspect]
     Indication: CROHN'S DISEASE
     Route: 042
  6. OMEPRAZOLE [Concomitant]
     Route: 065
  7. VITAMIN C [Concomitant]
     Route: 065
  8. LISINOPRIL [Concomitant]
     Route: 065
  9. CALCIUM AND VIT D [Concomitant]
     Route: 065

REACTIONS (2)
  - DRUG INEFFECTIVE [None]
  - ARTHRITIS [None]
